FAERS Safety Report 11919977 (Version 3)
Quarter: 2016Q1

REPORT INFORMATION
  Report Type: Spontaneous
  Country: US (occurrence: US)
  Receive Date: 20160115
  Receipt Date: 20160302
  Transmission Date: 20160526
  Serious: Yes (Hospitalization)
  Sender: FDA-Public Use
  Company Number: US-BEH-2016057617

PATIENT
  Sex: Female
  Weight: 101 kg

DRUGS (33)
  1. METFORMIN HYDROCHLORIDE. [Concomitant]
     Active Substance: METFORMIN HYDROCHLORIDE
  2. LIDOCAINE/PRILOCAINE [Concomitant]
  3. NOVOLOG [Concomitant]
     Active Substance: INSULIN ASPART
  4. TEGRETOL XR [Concomitant]
     Active Substance: CARBAMAZEPINE
  5. IMITREX [Concomitant]
     Active Substance: SUMATRIPTAN SUCCINATE
  6. DALIRESP [Concomitant]
     Active Substance: ROFLUMILAST
  7. LEVOTHYROXINE. [Concomitant]
     Active Substance: LEVOTHYROXINE
  8. SPIRONOLACTONE. [Concomitant]
     Active Substance: SPIRONOLACTONE
  9. SOLU-CORTEF [Concomitant]
     Active Substance: HYDROCORTISONE SODIUM SUCCINATE
  10. LAMICTAL [Concomitant]
     Active Substance: LAMOTRIGINE
  11. ABILIFY [Concomitant]
     Active Substance: ARIPIPRAZOLE
  12. HIZENTRA [Suspect]
     Active Substance: HUMAN IMMUNOGLOBULIN G
     Route: 058
  13. LANTUS [Concomitant]
     Active Substance: INSULIN GLARGINE
  14. ACETAMINOPHEN. [Concomitant]
     Active Substance: ACETAMINOPHEN
  15. LASIX [Concomitant]
     Active Substance: FUROSEMIDE
  16. ZYFLO [Concomitant]
     Active Substance: ZILEUTON
  17. PREVACID [Concomitant]
     Active Substance: LANSOPRAZOLE
  18. REMERON [Concomitant]
     Active Substance: MIRTAZAPINE
  19. TOPAMAX [Concomitant]
     Active Substance: TOPIRAMATE
  20. XYZAL [Concomitant]
     Active Substance: LEVOCETIRIZINE DIHYDROCHLORIDE
  21. BACTRIM [Concomitant]
     Active Substance: SULFAMETHOXAZOLE\TRIMETHOPRIM
  22. CROMOLYN [Concomitant]
     Active Substance: CROMOLYN
  23. DULERA [Concomitant]
     Active Substance: FORMOTEROL FUMARATE DIHYDRATE\MOMETASONE FUROATE
  24. HIZENTRA [Suspect]
     Active Substance: HUMAN IMMUNOGLOBULIN G
     Indication: IMMUNODEFICIENCY COMMON VARIABLE
     Route: 058
  25. LIPITOR [Concomitant]
     Active Substance: ATORVASTATIN CALCIUM
  26. DIOVAN [Concomitant]
     Active Substance: VALSARTAN
  27. POTASSIUM CL ER [Concomitant]
     Active Substance: POTASSIUM CHLORIDE
  28. DITROPAN XL [Concomitant]
     Active Substance: OXYBUTYNIN CHLORIDE
  29. GEODON [Concomitant]
     Active Substance: ZIPRASIDONE HYDROCHLORIDE\ZIPRASIDONE MESYLATE
  30. CYTOMEL [Concomitant]
     Active Substance: LIOTHYRONINE SODIUM
  31. XOPENEX [Concomitant]
     Active Substance: LEVALBUTEROL HYDROCHLORIDE
  32. EPIPEN [Concomitant]
     Active Substance: EPINEPHRINE
  33. PREDNISONE. [Concomitant]
     Active Substance: PREDNISONE

REACTIONS (4)
  - Metabolic acidosis [Recovered/Resolved with Sequelae]
  - Asthma [Recovered/Resolved with Sequelae]
  - Upper respiratory tract infection [Recovered/Resolved with Sequelae]
  - Lower respiratory tract infection [Recovered/Resolved with Sequelae]
